FAERS Safety Report 19558648 (Version 2)
Quarter: 2021Q3

REPORT INFORMATION
  Report Type: Report from Study
  Country: ES (occurrence: ES)
  Receive Date: 20210715
  Receipt Date: 20210722
  Transmission Date: 20211014
  Serious: Yes (Hospitalization, Other)
  Sender: FDA-Public Use
  Company Number: ES-TEVA-2021-ES-1931312

PATIENT
  Age: 52 Year
  Sex: Female

DRUGS (5)
  1. GLATIRAMER?ACETATE [Suspect]
     Active Substance: GLATIRAMER ACETATE
     Indication: RELAPSING MULTIPLE SCLEROSIS
     Route: 065
  2. INTERFERON?BETA?1A [Suspect]
     Active Substance: INTERFERON BETA-1A
     Indication: RELAPSING MULTIPLE SCLEROSIS
     Route: 065
  3. DIMETHYL?FUMARATE [Suspect]
     Active Substance: DIMETHYL FUMARATE
     Indication: RELAPSING MULTIPLE SCLEROSIS
     Route: 065
     Dates: start: 201603, end: 201707
  4. THIAMAZOLE [Concomitant]
     Active Substance: METHIMAZOLE
     Indication: AUTOIMMUNE THYROIDITIS
     Route: 065
  5. DIMETHYL?FUMARATE [Suspect]
     Active Substance: DIMETHYL FUMARATE
     Dosage: THERAPY RESTARTED IN 2018
     Route: 065
     Dates: start: 2018

REACTIONS (3)
  - Thyroid cancer [Recovered/Resolved]
  - Lymphopenia [Recovered/Resolved]
  - Metastases to lymph nodes [Recovered/Resolved]

NARRATIVE: CASE EVENT DATE: 201707
